FAERS Safety Report 11717162 (Version 3)
Quarter: 2015Q4

REPORT INFORMATION
  Report Type: Spontaneous
  Country: US (occurrence: US)
  Receive Date: 20151104
  Receipt Date: 20151120
  Transmission Date: 20160304
  Serious: No
  Sender: FDA-Public Use
  Company Number: US-ELI_LILLY_AND_COMPANY-US201108007617

PATIENT
  Sex: Female

DRUGS (3)
  1. FORTEO [Suspect]
     Active Substance: TERIPARATIDE
     Indication: OSTEOPOROSIS
     Dosage: 20 UG, QD
     Route: 065
  2. FORTEO [Suspect]
     Active Substance: TERIPARATIDE
     Dosage: 20 UG, QD
     Route: 065
  3. FORTEO [Suspect]
     Active Substance: TERIPARATIDE
     Dosage: 20 UG, QD

REACTIONS (13)
  - Balance disorder [Unknown]
  - Fall [Recovered/Resolved]
  - Paraesthesia [Unknown]
  - Memory impairment [Unknown]
  - Decreased interest [Recovering/Resolving]
  - Dizziness [Unknown]
  - Contusion [Unknown]
  - Compulsive hoarding [Unknown]
  - Gastrointestinal disorder [Unknown]
  - Pain [Recovering/Resolving]
  - Back pain [Unknown]
  - Emotional disorder [Not Recovered/Not Resolved]
  - Pain [Unknown]
